FAERS Safety Report 17865739 (Version 1)
Quarter: 2020Q2

REPORT INFORMATION
  Report Type: Report from Study
  Country: ZA (occurrence: ZA)
  Receive Date: 20200605
  Receipt Date: 20200605
  Transmission Date: 20200714
  Serious: Yes (Hospitalization)
  Sender: FDA-Public Use
  Company Number: PHHY2018ZA028560

PATIENT
  Age: 51 Year
  Sex: Female

DRUGS (1)
  1. TUVIGIN [Suspect]
     Active Substance: FINGOLIMOD HYDROCHLORIDE
     Indication: RELAPSING-REMITTING MULTIPLE SCLEROSIS
     Dosage: 0.5 MG, QD
     Route: 048
     Dates: start: 20180608

REACTIONS (8)
  - Nausea [Recovering/Resolving]
  - Constipation [Recovering/Resolving]
  - Abdominal distension [Recovering/Resolving]
  - Gastrointestinal disorder [Recovering/Resolving]
  - Vomiting [Recovering/Resolving]
  - Headache [Recovered/Resolved]
  - Multiple sclerosis relapse [Recovering/Resolving]
  - Myelopathy [Unknown]

NARRATIVE: CASE EVENT DATE: 20180609
